FAERS Safety Report 15001287 (Version 1)
Quarter: 2018Q2

REPORT INFORMATION
  Report Type: Spontaneous
  Country: ES (occurrence: ES)
  Receive Date: 20180612
  Receipt Date: 20180612
  Transmission Date: 20180711
  Serious: Yes (Death, Other)
  Sender: FDA-Public Use
  Company Number: ES-BRISTOL-MYERS SQUIBB COMPANY-BMS-2018-054271

PATIENT
  Age: 65 Year
  Sex: Male

DRUGS (1)
  1. NIVOLUMAB [Suspect]
     Active Substance: NIVOLUMAB
     Indication: BLADDER CANCER STAGE IV
     Dosage: 3 MG/KG, Q2WK
     Route: 065

REACTIONS (4)
  - Lichen sclerosus [Recovering/Resolving]
  - Malignant neoplasm progression [Fatal]
  - Product use in unapproved indication [Unknown]
  - Eosinophilic fasciitis [Recovering/Resolving]
